FAERS Safety Report 12402599 (Version 2)
Quarter: 2016Q3

REPORT INFORMATION
  Report Type: Report from Study
  Country: CA (occurrence: CA)
  Receive Date: 20160525
  Receipt Date: 20160705
  Transmission Date: 20161109
  Serious: Yes (Other)
  Sender: FDA-Public Use
  Company Number: CA-ROCHE-1684212

PATIENT
  Sex: Female

DRUGS (2)
  1. AVASTIN [Suspect]
     Active Substance: BEVACIZUMAB
     Indication: OVARIAN CANCER
     Route: 042
     Dates: start: 20151202
  2. AVASTIN [Suspect]
     Active Substance: BEVACIZUMAB
     Dosage: LAST INFUSION DATE:19/APR/2016
     Route: 042
     Dates: start: 20160209, end: 20160419

REACTIONS (2)
  - Intestinal obstruction [Unknown]
  - White blood cell count decreased [Unknown]
